FAERS Safety Report 4492047-4 (Version None)
Quarter: 2004Q4

REPORT INFORMATION
  Report Type: 
  Country: None (occurrence: None)
  Receive Date: 20041101
  Receipt Date: 20041022
  Transmission Date: 20050328
  Serious: Yes (Hospitalization, Other)
  Sender: FDA-Public Use
  Company Number: FRWYE133722OCT04

PATIENT
  Age: 81 Year
  Sex: Female

DRUGS (2)
  1. TAZOCILLINE (PIPERACILLIN/TAZOBACTAM, INJECTION) [Suspect]
     Indication: FEBRILE NEUTROPENIA
     Dosage: INTRAVENOUS
     Route: 042
     Dates: start: 20040915, end: 20040915
  2. AMIKACIN [Concomitant]

REACTIONS (1)
  - ANGIONEUROTIC OEDEMA [None]
